FAERS Safety Report 17209622 (Version 2)
Quarter: 2020Q1

REPORT INFORMATION
  Report Type: Spontaneous
  Country: US (occurrence: US)
  Receive Date: 20191227
  Receipt Date: 20200210
  Transmission Date: 20200409
  Serious: Yes (Hospitalization)
  Sender: FDA-Public Use
  Company Number: US-SA-2019SA359405

PATIENT
  Age: 64 Year
  Sex: Female

DRUGS (2)
  1. PRALUENT [Suspect]
     Active Substance: ALIROCUMAB
     Dosage: 150 MG, OTHER
     Route: 058
     Dates: start: 201809
  2. PRALUENT [Suspect]
     Active Substance: ALIROCUMAB
     Dosage: 1 DF, OTHER
     Route: 058
     Dates: start: 2013

REACTIONS (2)
  - Spinal operation [Unknown]
  - Product dose omission [Unknown]

NARRATIVE: CASE EVENT DATE: 20191020
